FAERS Safety Report 7297871-0 (Version None)
Quarter: 2011Q1

REPORT INFORMATION
  Report Type: 
  Country: None (occurrence: None)
  Receive Date: 20110207
  Receipt Date: 20110127
  Transmission Date: 20110831
  Serious: Yes (Hospitalization)
  Sender: FDA-Public Use
  Company Number: 2009AC000017

PATIENT
  Sex: Male

DRUGS (19)
  1. HYDROCODONE [Concomitant]
  2. OXYBUTYNIN [Concomitant]
  3. QUININE [Concomitant]
  4. METOPROLOL TARTRATE [Concomitant]
  5. LISINOPRIL [Concomitant]
  6. LANTUS [Concomitant]
  7. K-DUR [Concomitant]
  8. AMARYL [Concomitant]
  9. COZAAR [Concomitant]
  10. ASPIRIN [Concomitant]
  11. XANAX [Concomitant]
  12. COREG [Concomitant]
  13. DIGOXIN [Suspect]
     Indication: ATRIAL FIBRILLATION
     Dosage: (PO) (PO) (0.125 MG; QD; PO)
     Route: 048
     Dates: start: 20050101
  14. DIGOXIN [Suspect]
     Indication: ATRIAL FIBRILLATION
     Dosage: (PO) (PO) (0.125 MG; QD; PO)
     Route: 048
     Dates: start: 20020401
  15. DIGOXIN [Suspect]
     Indication: ATRIAL FIBRILLATION
     Dosage: (PO) (PO) (0.125 MG; QD; PO)
     Route: 048
     Dates: start: 20040101
  16. ALEVE [Concomitant]
  17. AVANDOMET [Concomitant]
  18. LASIX [Concomitant]
  19. NEXIUM [Concomitant]

REACTIONS (12)
  - DRY MOUTH [None]
  - CORONARY ARTERY DISEASE [None]
  - MYOCARDIAL INFARCTION [None]
  - DYSPNOEA [None]
  - MYOCARDIAL ISCHAEMIA [None]
  - CONGESTIVE CARDIOMYOPATHY [None]
  - CARDIOACTIVE DRUG LEVEL DECREASED [None]
  - VENTRICULAR HYPOKINESIA [None]
  - LEFT VENTRICULAR DYSFUNCTION [None]
  - ECONOMIC PROBLEM [None]
  - MULTIPLE INJURIES [None]
  - SLEEP APNOEA SYNDROME [None]
